FAERS Safety Report 5584758-4 (Version None)
Quarter: 2008Q1

REPORT INFORMATION
  Report Type: 
  Country: None (occurrence: None)
  Receive Date: 20080103
  Receipt Date: 20071226
  Transmission Date: 20080703
  Serious: Yes (Other)
  Sender: FDA-Public Use
  Company Number: RGD: 57194/123

PATIENT
  Age: 28 Year
  Sex: 0

DRUGS (3)
  1. TERBINAFINE HCL [Suspect]
     Indication: ONYCHOMYCOSIS
     Dosage: 250 MG ORAL
     Route: 048
     Dates: start: 20070615, end: 20071012
  2. CO-CODAMOL (CODEINE PHOSPHATE, PARACETAMOL; ORAL USE) [Concomitant]
  3. DICLOFENAC (DICLOFENAC) [Concomitant]

REACTIONS (2)
  - DYSTONIA [None]
  - MUSCLE SPASMS [None]
